FAERS Safety Report 9994867 (Version 1)
Quarter: 2014Q1

REPORT INFORMATION
  Report Type: Spontaneous
  Country: US (occurrence: US)
  Receive Date: 20140311
  Receipt Date: 20140311
  Transmission Date: 20141002
  Serious: No
  Sender: FDA-Public Use
  Company Number: US-009507513-1402USA006833

PATIENT
  Age: 19 Year
  Sex: Female
  Weight: 65.31 kg

DRUGS (1)
  1. NEXPLANON [Suspect]
     Indication: CONTRACEPTION
     Dosage: UNK
     Dates: start: 20130204

REACTIONS (9)
  - Upper respiratory tract infection [Not Recovered/Not Resolved]
  - Vulvovaginal dryness [Unknown]
  - Fungal infection [Unknown]
  - Implant site rash [Recovered/Resolved]
  - Implant site pain [Not Recovered/Not Resolved]
  - Pain in extremity [Not Recovered/Not Resolved]
  - Rash [Recovered/Resolved]
  - Device deployment issue [Not Recovered/Not Resolved]
  - Wrong technique in drug usage process [Unknown]
